FAERS Safety Report 13227377 (Version 4)
Quarter: 2017Q3

REPORT INFORMATION
  Report Type: Spontaneous
  Country: US (occurrence: US)
  Receive Date: 20170213
  Receipt Date: 20170901
  Transmission Date: 20171127
  Serious: Yes (Other)
  Sender: FDA-Public Use
  Company Number: US-INCYTE CORPORATION-2017IN000835

PATIENT

DRUGS (2)
  1. JAKAFI [Suspect]
     Active Substance: RUXOLITINIB
     Dosage: 20 MG, BID
     Route: 048
  2. JAKAFI [Suspect]
     Active Substance: RUXOLITINIB
     Indication: MYELOFIBROSIS
     Dosage: 10 MG, BID (TWICE DAILY)
     Route: 048
     Dates: start: 20161229

REACTIONS (15)
  - White blood cell count increased [Unknown]
  - Fatigue [Unknown]
  - Body temperature fluctuation [Unknown]
  - Weight decreased [Unknown]
  - Dizziness [Unknown]
  - Pruritus [Unknown]
  - Varicose vein [Unknown]
  - Platelet count decreased [Unknown]
  - Myalgia [Unknown]
  - Osteomyelitis [Unknown]
  - Pain in extremity [Unknown]
  - Sputum discoloured [Unknown]
  - Hot flush [Unknown]
  - Splenomegaly [Unknown]
  - Vasodilatation [Unknown]

NARRATIVE: CASE EVENT DATE: 20170201
